FAERS Safety Report 13297736 (Version 1)
Quarter: 2017Q1

REPORT INFORMATION
  Report Type: Spontaneous
  Country: PK (occurrence: PK)
  Receive Date: 20170303
  Receipt Date: 20170303
  Transmission Date: 20170428
  Serious: Yes (Hospitalization)
  Sender: FDA-Public Use
  Company Number: None

PATIENT
  Age: 26 Year
  Sex: Female
  Weight: 40 kg

DRUGS (4)
  1. DUPHALAC [Suspect]
     Active Substance: LACTULOSE
  2. DAFLON [Concomitant]
     Active Substance: DIOSMIN\HESPERIDIN
  3. GANATON [Concomitant]
     Active Substance: ITOPRIDE
  4. EZOMOL [Concomitant]

REACTIONS (5)
  - Asthenia [None]
  - Diarrhoea [None]
  - Headache [None]
  - Pyrexia [None]
  - Abdominal pain upper [None]

NARRATIVE: CASE EVENT DATE: 20170302
